FAERS Safety Report 6467129-8 (Version None)
Quarter: 2009Q4

REPORT INFORMATION
  Report Type: 
  Country: None (occurrence: None)
  Receive Date: 20091127
  Receipt Date: 20091116
  Transmission Date: 20100525
  Serious: Yes (Other)
  Sender: FDA-Public Use
  Company Number: 2009AL007355

PATIENT
  Age: 69 Year

DRUGS (2)
  1. VINORELBINE [Suspect]
     Indication: NON-SMALL CELL LUNG CANCER
     Dosage: 30 MG/M**2; IV
     Route: 042
  2. CISPLATIN [Concomitant]

REACTIONS (1)
  - NEUTROPENIC SEPSIS [None]
